FAERS Safety Report 12326389 (Version 1)
Quarter: 2016Q2

REPORT INFORMATION
  Report Type: Spontaneous
  Country: US (occurrence: None)
  Receive Date: 20160502
  Receipt Date: 20160502
  Transmission Date: 20160815
  Serious: Yes (Hospitalization, Disabling)
  Sender: FDA-Public Use
  Company Number: None

PATIENT
  Age: 28 Year
  Sex: Female
  Weight: 114.76 kg

DRUGS (6)
  1. THYROID MED [Concomitant]
  2. VITAMIN D [Concomitant]
     Active Substance: CHOLECALCIFEROL
  3. EFFEXOR XR [Suspect]
     Active Substance: VENLAFAXINE HYDROCHLORIDE
     Indication: ANXIETY DISORDER
     Route: 048
     Dates: start: 20100923, end: 20160306
  4. COQ10 [Concomitant]
     Active Substance: UBIDECARENONE
  5. CLONZEPAM [Concomitant]
  6. FISH OIL [Concomitant]
     Active Substance: FISH OIL

REACTIONS (11)
  - Mental impairment [None]
  - Poor peripheral circulation [None]
  - Suffocation feeling [None]
  - Chest pain [None]
  - Pregnancy [None]
  - Muscular weakness [None]
  - Palpitations [None]
  - Dyspnoea [None]
  - Throat tightness [None]
  - Drug withdrawal syndrome [None]
  - Speech disorder [None]

NARRATIVE: CASE EVENT DATE: 20130420
